FAERS Safety Report 7271187-0 (Version None)
Quarter: 2011Q1

REPORT INFORMATION
  Report Type: 
  Country: None (occurrence: None)
  Receive Date: 20110202
  Receipt Date: 20110127
  Transmission Date: 20110831
  Serious: No
  Sender: FDA-Public Use
  Company Number: US-PFIZER INC-2011020750

PATIENT
  Sex: Female
  Weight: 72.6 kg

DRUGS (5)
  1. VITAMIN D [Concomitant]
     Dosage: 500 IU, UNK
  2. TRIAMTERENE AND HYDROCHLOROTHIAZIDE [Suspect]
     Indication: HYPERTENSION
     Dosage: UNK
     Route: 048
  3. CALCIUM CITRATE [Concomitant]
     Dosage: UNK
  4. PREMARIN [Suspect]
     Indication: OESTROGEN REPLACEMENT THERAPY
     Dosage: UNK
     Route: 048
     Dates: start: 19810101
  5. CALCIUM [Concomitant]
     Dosage: 630 MG, UNK

REACTIONS (5)
  - DRUG HYPERSENSITIVITY [None]
  - MUSCULOSKELETAL DISCOMFORT [None]
  - SALIVARY HYPERSECRETION [None]
  - FEELING ABNORMAL [None]
  - MUSCLE SPASMS [None]
